FAERS Safety Report 17105760 (Version 1)
Quarter: 2019Q4

REPORT INFORMATION
  Report Type: Spontaneous
  Country: IT (occurrence: IT)
  Receive Date: 20191203
  Receipt Date: 20191203
  Transmission Date: 20200122
  Serious: Yes (Hospitalization)
  Sender: FDA-Public Use
  Company Number: IT-ASTRAZENECA-2019SF71506

PATIENT
  Age: 41 Year
  Sex: Female

DRUGS (4)
  1. TACHIPIRINA [Concomitant]
     Active Substance: ACETAMINOPHEN
     Indication: HYPERPYREXIA
     Dosage: 2.0DF UNKNOWN
     Route: 048
  2. LUCEN [Suspect]
     Active Substance: ESOMEPRAZOLE
     Indication: ABDOMINAL PAIN UPPER
     Route: 048
     Dates: start: 20191026, end: 20191101
  3. RIOPAN [Concomitant]
     Indication: ABDOMINAL PAIN UPPER
     Dosage: 1.0DF UNKNOWN
     Route: 048
  4. SIMECRIN [Concomitant]
     Indication: FLATULENCE
     Dosage: 1.0DF UNKNOWN
     Route: 048

REACTIONS (6)
  - Tongue oedema [Recovered/Resolved]
  - Tachycardia [Recovered/Resolved]
  - Oedema peripheral [Recovered/Resolved]
  - Erythema [Recovered/Resolved]
  - Vasoconstriction [Recovered/Resolved]
  - Dysphonia [Recovered/Resolved]

NARRATIVE: CASE EVENT DATE: 20191101
